FAERS Safety Report 9804305 (Version 2)
Quarter: 2014Q1

REPORT INFORMATION
  Report Type: Spontaneous
  Country: DE (occurrence: DE)
  Receive Date: 20140108
  Receipt Date: 20140225
  Transmission Date: 20141002
  Serious: Yes (Hospitalization)
  Sender: FDA-Public Use
  Company Number: DE-BRISTOL-MYERS SQUIBB COMPANY-19969674

PATIENT
  Age: 74 Year
  Sex: 0
  Weight: 76 kg

DRUGS (1)
  1. YERVOY [Suspect]
     Indication: METASTATIC MALIGNANT MELANOMA
     Dosage: 3 MG/KG BODY WEIGHT,231MG TOTAL ON 09DEC13
     Route: 042
     Dates: start: 20131205

REACTIONS (1)
  - Colitis [Recovering/Resolving]
